FAERS Safety Report 18376759 (Version 3)
Quarter: 2020Q4

REPORT INFORMATION
  Report Type: Report from Study
  Country: NL (occurrence: NL)
  Receive Date: 20201013
  Receipt Date: 20201106
  Transmission Date: 20210114
  Serious: Yes (Life-Threatening)
  Sender: FDA-Public Use
  Company Number: NL-JNJFOC-20201008680

PATIENT
  Sex: Male
  Weight: 106 kg

DRUGS (3)
  1. STELARA [Suspect]
     Active Substance: USTEKINUMAB
     Route: 058
     Dates: start: 201803, end: 201806
  2. RISANKIZUMAB [Concomitant]
     Active Substance: RISANKIZUMAB
     Indication: PSORIASIS
     Route: 065
     Dates: start: 202004
  3. STELARA [Suspect]
     Active Substance: USTEKINUMAB
     Indication: PSORIASIS
     Route: 058
     Dates: start: 201705, end: 201712

REACTIONS (1)
  - Neoplasm [Not Recovered/Not Resolved]

NARRATIVE: CASE EVENT DATE: 202008
